FAERS Safety Report 6291803-X (Version None)
Quarter: 2009Q3

REPORT INFORMATION
  Report Type: 
  Country: None (occurrence: None)
  Receive Date: 20090730
  Receipt Date: 20090728
  Transmission Date: 20100115
  Serious: Yes (Hospitalization)
  Sender: FDA-Public Use
  Company Number: AU-B.I. PHARMACEUTICALS,INC./RIDGEFIELD-2009-AU-00348AU

PATIENT
  Sex: Female
  Weight: 58 kg

DRUGS (4)
  1. PERSANTINE [Suspect]
     Indication: CEREBROVASCULAR DISORDER
     Dosage: 400 MG
     Dates: start: 20070715, end: 20081115
  2. KARVEZIDE [Suspect]
     Indication: ESSENTIAL HYPERTENSION
     Dosage: 1 DOSE UNSPEC
  3. ASPIRIN [Concomitant]
     Indication: CEREBROVASCULAR DISORDER
     Dosage: 100 MG
  4. AVANDAMET [Concomitant]
     Indication: DIABETES MELLITUS

REACTIONS (3)
  - BLOOD CREATINE INCREASED [None]
  - PRODUCT DEPOSIT [None]
  - TUBULOINTERSTITIAL NEPHRITIS [None]
